FAERS Safety Report 7458343-3 (Version None)
Quarter: 2011Q2

REPORT INFORMATION
  Report Type: 
  Country: None (occurrence: None)
  Receive Date: 20110504
  Receipt Date: 20110425
  Transmission Date: 20111010
  Serious: Yes (Hospitalization)
  Sender: FDA-Public Use
  Company Number: US-ASTRAZENECA-2011SE19745

PATIENT
  Age: 85 Year
  Sex: Male

DRUGS (3)
  1. TOPROL-XL [Suspect]
     Route: 048
  2. CRESTOR [Suspect]
     Route: 048
  3. NEXIUM [Suspect]
     Route: 048

REACTIONS (8)
  - ULCER [None]
  - FALL [None]
  - BACK DISORDER [None]
  - PAIN [None]
  - ACCIDENT [None]
  - GLAUCOMA [None]
  - HYPERCHLORHYDRIA [None]
  - DRUG DOSE OMISSION [None]
